FAERS Safety Report 9682551 (Version 2)
Quarter: 2013Q4

REPORT INFORMATION
  Report Type: Spontaneous
  Country: US (occurrence: US)
  Receive Date: 20131012
  Receipt Date: 20131018
  Transmission Date: 20140711
  Serious: Yes (Other)
  Sender: FDA-Public Use
  Company Number: US-DRREDDYS-USA/USA/13/0034885

PATIENT
  Age: 18 Year
  Sex: Male

DRUGS (3)
  1. ZENATANE [Suspect]
     Indication: ACNE
     Route: 065
     Dates: start: 20130515
  2. ZENATANE [Suspect]
     Route: 065
     Dates: start: 20130610
  3. ZENATANE [Suspect]
     Route: 065
     Dates: start: 20130808, end: 20130929

REACTIONS (1)
  - Mood swings [Unknown]
